FAERS Safety Report 20686210 (Version 1)
Quarter: 2022Q2

REPORT INFORMATION
  Report Type: Report from Study
  Country: US (occurrence: US)
  Receive Date: 20220407
  Receipt Date: 20220407
  Transmission Date: 20220720
  Serious: Yes (Other)
  Sender: FDA-Public Use
  Company Number: US-JAZZ-2022-US-002515

PATIENT
  Sex: Female

DRUGS (1)
  1. SUNOSI [Suspect]
     Active Substance: SOLRIAMFETOL
     Indication: Somnolence
     Route: 048

REACTIONS (6)
  - Surgery [Unknown]
  - Haemorrhoids [Unknown]
  - Dry skin [Unknown]
  - Pain [Unknown]
  - Pre-existing condition improved [Unknown]
  - Off label use [Unknown]
